FAERS Safety Report 25069547 (Version 1)
Quarter: 2025Q1

REPORT INFORMATION
  Report Type: Report from Study
  Country: US (occurrence: US)
  Receive Date: 20250312
  Receipt Date: 20250312
  Transmission Date: 20250409
  Serious: Yes (Other)
  Sender: ABBVIE
  Company Number: US-ABBVIE-6143394

PATIENT
  Age: 30 Year
  Sex: Female
  Weight: 103.41 kg

DRUGS (6)
  1. SKYRIZI [Suspect]
     Active Substance: RISANKIZUMAB-RZAA
     Indication: Crohn^s disease
     Route: 058
     Dates: start: 20221129
  2. ALLEGRA [Concomitant]
     Active Substance: FEXOFENADINE HYDROCHLORIDE
     Indication: Multiple allergies
  3. LAMOTRIGINE [Concomitant]
     Active Substance: LAMOTRIGINE
     Indication: Bipolar disorder
  4. AZELASTINE [Concomitant]
     Active Substance: AZELASTINE
     Indication: Hypersensitivity
     Route: 045
  5. AMITRIPTYLINE [Concomitant]
     Active Substance: AMITRIPTYLINE
     Indication: Fibromyalgia
  6. ABILIFY [Concomitant]
     Active Substance: ARIPIPRAZOLE
     Indication: Bipolar disorder

REACTIONS (9)
  - Loss of consciousness [Recovering/Resolving]
  - Metabolic dysfunction-associated liver disease [Recovering/Resolving]
  - Vomiting [Recovered/Resolved]
  - Norovirus infection [Recovered/Resolved]
  - Nausea [Recovered/Resolved]
  - Hepatic enzyme increased [Not Recovered/Not Resolved]
  - Dehydration [Recovered/Resolved]
  - Astigmatism [Recovering/Resolving]
  - Postural orthostatic tachycardia syndrome [Not Recovered/Not Resolved]

NARRATIVE: CASE EVENT DATE: 20240101
